FAERS Safety Report 14989242 (Version 2)
Quarter: 2018Q2

REPORT INFORMATION
  Report Type: Spontaneous
  Country: IT (occurrence: IT)
  Receive Date: 20180608
  Receipt Date: 20180620
  Transmission Date: 20180711
  Serious: Yes (Life-Threatening, Hospitalization, Other)
  Sender: FDA-Public Use
  Company Number: IT-009507513-1806ITA002897

PATIENT
  Age: 45 Year
  Sex: Female
  Weight: 55 kg

DRUGS (1)
  1. ORGALUTRAN [Suspect]
     Active Substance: GANIRELIX ACETATE
     Indication: IN VITRO FERTILISATION
     Dosage: UNK
     Dates: start: 201705, end: 201705

REACTIONS (4)
  - Failed in vitro fertilisation [Unknown]
  - Multiple sclerosis relapse [Recovered/Resolved]
  - Stress cardiomyopathy [Recovered/Resolved]
  - Ventricular dysfunction [Unknown]

NARRATIVE: CASE EVENT DATE: 201705
